FAERS Safety Report 18092530 (Version 1)
Quarter: 2020Q3

REPORT INFORMATION
  Report Type: Spontaneous
  Country: US (occurrence: US)
  Receive Date: 20200730
  Receipt Date: 20200730
  Transmission Date: 20201103
  Serious: No
  Sender: FDA-Public Use
  Company Number: US-PFIZER INC-2020266518

PATIENT
  Age: 63 Year

DRUGS (2)
  1. DILANTIN [Suspect]
     Active Substance: PHENYTOIN
     Dosage: 30 MG, DAILY[SIG: TAKE 1 CAPSULE BY MOUTH EVERY DAY 90 DAYS]
     Route: 048
  2. DILANTIN [Suspect]
     Active Substance: PHENYTOIN
     Dosage: 300 MG, 1X/DAY[SIG: TAKE 3 CAPS BY MOUTH ONCE DAILY AT BEDTIME 90 DAYS]
     Route: 048

REACTIONS (1)
  - Stress [Unknown]
